FAERS Safety Report 4470122-8 (Version None)
Quarter: 2004Q3

REPORT INFORMATION
  Report Type: 
  Country: None (occurrence: None)
  Receive Date: 20040910
  Receipt Date: 20040714
  Transmission Date: 20050211
  Serious: No
  Sender: FDA-Public Use
  Company Number: 2004223727US

PATIENT
  Sex: Female

DRUGS (2)
  1. BEXTRA [Suspect]
     Indication: FOOT FRACTURE
     Dosage: 10 MG
  2. XANAX [Concomitant]

REACTIONS (2)
  - DIARRHOEA [None]
  - GASTRIC DISORDER [None]
